FAERS Safety Report 8861145 (Version 2)
Quarter: 2013Q1

REPORT INFORMATION
  Report Type: Spontaneous
  Country: US (occurrence: US)
  Receive Date: 20121025
  Receipt Date: 20130124
  Transmission Date: 20140127
  Serious: No
  Sender: FDA-Public Use
  Company Number: US-009507513-1210USA010521

PATIENT
  Sex: Female

DRUGS (1)
  1. IMPLANON [Suspect]
     Indication: CONTRACEPTION
     Dosage: 1 DF, UPT TO 3 YEARS
     Dates: start: 20120711

REACTIONS (5)
  - Injection site mass [Unknown]
  - Implant site pain [Unknown]
  - Implant site pruritus [Unknown]
  - Device breakage [Unknown]
  - Device damage [Unknown]
